FAERS Safety Report 6544160-5 (Version None)
Quarter: 2010Q1

REPORT INFORMATION
  Report Type: 
  Country: None (occurrence: None)
  Receive Date: 20100120
  Receipt Date: 20090608
  Transmission Date: 20100710
  Serious: No
  Sender: FDA-Public Use
  Company Number: US-ALLERGAN-0907979US

PATIENT
  Sex: Female

DRUGS (3)
  1. ACULAR [Suspect]
     Indication: DRUG USE FOR UNKNOWN INDICATION
  2. PRED FORTE [Suspect]
     Indication: DRUG USE FOR UNKNOWN INDICATION
  3. ZYMAR [Suspect]
     Indication: DRUG USE FOR UNKNOWN INDICATION

REACTIONS (3)
  - EYE IRRITATION [None]
  - HYPERSENSITIVITY [None]
  - VISION BLURRED [None]
